FAERS Safety Report 8486566 (Version 8)
Quarter: 2014Q1

REPORT INFORMATION
  Report Type: Report from Study
  Country: CA (occurrence: CA)
  Receive Date: 20120402
  Receipt Date: 20140221
  Transmission Date: 20141002
  Serious: Yes (Hospitalization, Other)
  Sender: FDA-Public Use
  Company Number: PHHY2011CA04373

PATIENT
  Age: 51 Year
  Sex: Female

DRUGS (2)
  1. SANDOSTATIN LAR [Suspect]
     Indication: PANCREATITIS CHRONIC
     Dosage: 20 MG, QMO
     Route: 030
     Dates: start: 20101116
  2. SANDOSTATIN LAR [Suspect]
     Dosage: 30 MG, QMO
     Route: 030

REACTIONS (8)
  - Upper limb fracture [Unknown]
  - Arthritis [Unknown]
  - Bronchitis [Unknown]
  - Fall [Unknown]
  - Sinusitis [Unknown]
  - Blood pressure systolic increased [Unknown]
  - Abdominal distension [Unknown]
  - Vomiting [Unknown]
